FAERS Safety Report 5926362-1 (Version None)
Quarter: 2008Q4

REPORT INFORMATION
  Report Type: 
  Country: None (occurrence: None)
  Receive Date: 20081022
  Receipt Date: 20081014
  Transmission Date: 20090506
  Serious: Yes (Hospitalization)
  Sender: FDA-Public Use
  Company Number: US-ROCHE-591838

PATIENT
  Sex: Female

DRUGS (3)
  1. BONIVA [Suspect]
     Indication: OSTEOPOROSIS
     Route: 048
     Dates: start: 20070101, end: 20080701
  2. DIOVAN [Concomitant]
  3. LORAZEPAM [Concomitant]

REACTIONS (4)
  - BONE DISORDER [None]
  - DYSPHAGIA [None]
  - OESOPHAGEAL DISORDER [None]
  - PAIN IN JAW [None]
